FAERS Safety Report 19922608 (Version 1)
Quarter: 2021Q4

REPORT INFORMATION
  Report Type: Other
  Country: UG (occurrence: UG)
  Receive Date: 20211006
  Receipt Date: 20211006
  Transmission Date: 20220303
  Serious: Yes (Other)
  Sender: FDA-Public Use
  Company Number: UG-MACLEODS PHARMA UK LTD-MAC2021032857

PATIENT

DRUGS (4)
  1. TENOFOVIR DISOPROXIL [Suspect]
     Active Substance: TENOFOVIR DISOPROXIL
     Indication: HIV infection
     Dosage: 300 MILLIGRAM, QD, 1 COURSE, EXPOSURE PRIOR TO CONCEPTION, DURING FIRST TRIMESTER OF PREGNANCY
     Route: 065
     Dates: start: 20170228
  2. LAMIVUDINE [Suspect]
     Active Substance: LAMIVUDINE
     Indication: HIV infection
     Dosage: 300 MILLIGRAM, QD, 1 COURSE, EXPOSURE PRIOR TO CONCEPTION, DURING FIRST TRIMESTER OF PREGNANCY
     Route: 065
     Dates: start: 20170228
  3. COTRIMOXAZOLE [Suspect]
     Active Substance: SULFAMETHOXAZOLE\TRIMETHOPRIM
     Indication: Product used for unknown indication
     Dosage: 480 MILLIGRAM, 1 COURSE, EXPOSURE PRIOR TO CONCEPTION, DURING FIRST TRIMESTER OF PREGNANCY
     Route: 065
  4. TIVICAY [Suspect]
     Active Substance: DOLUTEGRAVIR SODIUM
     Indication: HIV infection
     Dosage: 50 MILLIGRAM, QD 1 COURSE, EXPOSURE PRIOR TO CONCEPTION, DURING FIRST TRIMESTER OF PREGNANCY
     Route: 065
     Dates: start: 20180424

REACTIONS (2)
  - Abortion spontaneous [Unknown]
  - Maternal exposure during pregnancy [Unknown]
